FAERS Safety Report 20515736 (Version 1)
Quarter: 2022Q1

REPORT INFORMATION
  Report Type: Spontaneous
  Country: IN (occurrence: IN)
  Receive Date: 20220224
  Receipt Date: 20220224
  Transmission Date: 20220424
  Serious: Yes (Hospitalization)
  Sender: FDA-Public Use
  Company Number: IN-STRIDES ARCOLAB LIMITED-2022SP001761

PATIENT
  Age: 35 Year
  Sex: Female

DRUGS (5)
  1. TRAVOPROST [Suspect]
     Active Substance: TRAVOPROST
     Indication: Iridocorneal endothelial syndrome
     Dosage: UNK, AT BED TIME (0.004%)
     Route: 065
  2. BRIMONIDINE [Suspect]
     Active Substance: BRIMONIDINE TARTRATE
     Indication: Iridocorneal endothelial syndrome
     Dosage: UNK, BID (DROPS)
     Route: 047
  3. TIMOLOL [Suspect]
     Active Substance: TIMOLOL
     Indication: Iridocorneal endothelial syndrome
     Dosage: UNK, BID
     Route: 065
  4. DORZOLAMIDE [Suspect]
     Active Substance: DORZOLAMIDE
     Indication: Iridocorneal endothelial syndrome
     Dosage: UNK, BID
     Route: 065
  5. BRIMONIDINE TARTRATE\TIMOLOL MALEATE [Suspect]
     Active Substance: BRIMONIDINE TARTRATE\TIMOLOL MALEATE
     Indication: Iridocorneal endothelial syndrome
     Dosage: UNK
     Route: 065
     Dates: start: 2018

REACTIONS (3)
  - Macular detachment [Recovered/Resolved]
  - Macular oedema [Recovered/Resolved]
  - Drug ineffective for unapproved indication [Unknown]

NARRATIVE: CASE EVENT DATE: 20180101
